FAERS Safety Report 5252677-9 (Version None)
Quarter: 2007Q1

REPORT INFORMATION
  Report Type: 
  Country: None (occurrence: None)
  Receive Date: 20070301
  Receipt Date: 20061220
  Transmission Date: 20070707
  Serious: No
  Sender: FDA-Public Use
  Company Number: US-GLAXOSMITHKLINE-A0626580A

PATIENT
  Age: 41 Year
  Sex: Male

DRUGS (7)
  1. LAMICTAL [Suspect]
     Indication: BIPOLAR DISORDER
     Dosage: 100MG PER DAY
     Route: 048
     Dates: end: 20061101
  2. KLONOPIN [Concomitant]
     Dosage: .5MG THREE TIMES PER DAY
  3. VISTARIL [Concomitant]
     Dosage: 50MG AS REQUIRED
  4. WELLBUTRIN SR [Concomitant]
     Dosage: 150MG TWICE PER DAY
     Route: 048
  5. NEURONTIN [Concomitant]
     Dosage: 400MG AS DIRECTED
  6. SEROQUEL [Concomitant]
     Dosage: 200MG AT NIGHT
  7. LEXAPRO [Concomitant]
     Dosage: 10MG PER DAY

REACTIONS (1)
  - OEDEMA PERIPHERAL [None]
